FAERS Safety Report 17469177 (Version 4)
Quarter: 2021Q1

REPORT INFORMATION
  Report Type: Spontaneous
  Country: US (occurrence: US)
  Receive Date: 20200227
  Receipt Date: 20210310
  Transmission Date: 20210419
  Serious: Yes (Hospitalization)
  Sender: FDA-Public Use
  Company Number: US-SA-2020SA047807

PATIENT
  Age: 44 Year
  Sex: Female
  Weight: 140.59 kg

DRUGS (29)
  1. OZEMPIC [Concomitant]
     Active Substance: SEMAGLUTIDE
  2. JANUVIA [Concomitant]
     Active Substance: SITAGLIPTIN PHOSPHATE
  3. LISINOPRIL. [Concomitant]
     Active Substance: LISINOPRIL
  4. ADVAIR HFA [Concomitant]
     Active Substance: FLUTICASONE PROPIONATE\SALMETEROL XINAFOATE
  5. CARBAMAZEPINE. [Concomitant]
     Active Substance: CARBAMAZEPINE
  6. MEDROXYPROGESTERONE [Concomitant]
     Active Substance: MEDROXYPROGESTERONE
  7. BACLOFEN. [Concomitant]
     Active Substance: BACLOFEN
  8. EPINEPHRINE. [Concomitant]
     Active Substance: EPINEPHRINE
  9. WATER FOR INJECTION [Concomitant]
     Active Substance: WATER
  10. HYDROCODONE/ACETAMINOPHEN [Concomitant]
     Active Substance: ACETAMINOPHEN\HYDROCODONE
  11. ALLOPURINOL. [Concomitant]
     Active Substance: ALLOPURINOL
  12. FABRAZYME [Suspect]
     Active Substance: AGALSIDASE BETA
     Dosage: 1.14 MG/KG, QOW
     Route: 042
  13. ACETAMINOPHEN. [Concomitant]
     Active Substance: ACETAMINOPHEN
  14. SINGULAIR [Concomitant]
     Active Substance: MONTELUKAST SODIUM
  15. GLIMEPIRIDE. [Concomitant]
     Active Substance: GLIMEPIRIDE
  16. KEFLEX [Concomitant]
     Active Substance: CEPHALEXIN
  17. ALBUTEROL [SALBUTAMOL] [Concomitant]
     Active Substance: ALBUTEROL
  18. ASPIRIN [ACETYLSALICYLIC ACID] [Concomitant]
     Active Substance: ASPIRIN
  19. FABRAZYME [Suspect]
     Active Substance: AGALSIDASE BETA
     Indication: FABRY^S DISEASE
     Dosage: 1.09 MG/KG (160MG), QOW
     Route: 042
     Dates: start: 20191029
  20. FABRAZYME [Suspect]
     Active Substance: AGALSIDASE BETA
     Dosage: 1.09 MG/KG (160MG), QOW
     Route: 042
     Dates: start: 20191104
  21. ADVIL [Concomitant]
     Active Substance: IBUPROFEN
  22. DIPHENHYDRAMINE. [Concomitant]
     Active Substance: DIPHENHYDRAMINE
  23. METFORMIN [METFORMIN HYDROCHLORIDE] [Concomitant]
     Active Substance: METFORMIN HYDROCHLORIDE
  24. IRON [Concomitant]
     Active Substance: IRON
  25. NORCO [Concomitant]
     Active Substance: ACETAMINOPHEN\HYDROCODONE BITARTRATE
  26. LEVOTHYROXINE. [Concomitant]
     Active Substance: LEVOTHYROXINE
  27. VITAMIN D3 [Concomitant]
     Active Substance: CHOLECALCIFEROL
  28. ZOFRAN [Concomitant]
     Active Substance: ONDANSETRON HYDROCHLORIDE
  29. NORMAL SALINE [Concomitant]
     Active Substance: SODIUM CHLORIDE

REACTIONS (7)
  - Sunburn [Unknown]
  - Pain in extremity [Unknown]
  - Endometrial ablation [Unknown]
  - Poor venous access [Unknown]
  - Palpitations [Recovered/Resolved]
  - Burning sensation [Unknown]
  - Uterine dilation and curettage [Unknown]

NARRATIVE: CASE EVENT DATE: 202002
